FAERS Safety Report 17885051 (Version 1)
Quarter: 2020Q2

REPORT INFORMATION
  Report Type: Spontaneous
  Country: US (occurrence: US)
  Receive Date: 20200611
  Receipt Date: 20200611
  Transmission Date: 20200714
  Serious: No
  Sender: FDA-Public Use
  Company Number: US-SA-2020SA136955

PATIENT
  Sex: Male

DRUGS (1)
  1. MULTAQ [Suspect]
     Active Substance: DRONEDARONE
     Indication: ATRIAL FIBRILLATION
     Dosage: 400MG TO 200 MG BID

REACTIONS (4)
  - Fatigue [Unknown]
  - Dry skin [Unknown]
  - Wrong technique in product usage process [Unknown]
  - Dyspnoea [Unknown]
